FAERS Safety Report 8143572 (Version 2)
Quarter: 2012Q4

REPORT INFORMATION
  Report Type: Report from Study
  Country: US (occurrence: US)
  Receive Date: 20110920
  Receipt Date: 20120924
  Transmission Date: 20130627
  Serious: Yes (Death, Hospitalization)
  Sender: FDA-Public Use
  Company Number: US-CELGENEUS-163-21880-09120066

PATIENT
  Age: 70 Year
  Sex: Male
  Weight: 74 kg

DRUGS (14)
  1. REVLIMID [Suspect]
     Indication: MYELOMA
     Dosage: 10 Milligram
     Route: 048
     Dates: start: 20090416
  2. REVLIMID [Suspect]
     Dosage: 10 Milligram
     Route: 048
     Dates: start: 20091029, end: 20091118
  3. MELPHALAN [Suspect]
     Indication: MYELOMA
     Dosage: 5 milligram/sq. meter
     Route: 048
     Dates: start: 20090416
  4. MELPHALAN [Suspect]
     Dosage: 5 milligram/sq. meter
     Route: 048
     Dates: start: 20091029, end: 20091101
  5. PREDNISONE [Suspect]
     Indication: MYELOMA
     Dosage: 100 Milligram
     Route: 048
     Dates: start: 20090416
  6. PREDNISONE [Suspect]
     Dosage: 100 Milligram
     Route: 048
     Dates: start: 20091029, end: 20091101
  7. ASPIRIN [Concomitant]
     Indication: DRUG USE FOR UNKNOWN INDICATION
     Dosage: 325 Milligram
     Route: 048
  8. CELEXA [Concomitant]
     Indication: DRUG USE FOR UNKNOWN INDICATION
     Route: 065
  9. ZOCOR [Concomitant]
     Indication: DRUG USE FOR UNKNOWN INDICATION
     Dosage: 10 Milligram
     Route: 065
  10. LOPRESSOR [Concomitant]
     Indication: DRUG USE FOR UNKNOWN INDICATION
     Dosage: 12.5 Milligram
     Route: 065
  11. K-DUR [Concomitant]
     Indication: DRUG USE FOR UNKNOWN INDICATION
     Dosage: 40 Milliequivalents
     Route: 065
  12. METHADONE [Concomitant]
     Indication: DRUG USE FOR UNKNOWN INDICATION
     Dosage: 20 Milligram
     Route: 065
  13. DILAUDID [Concomitant]
     Indication: DRUG USE FOR UNKNOWN INDICATION
     Route: 065
  14. FERROUS SULFATE [Concomitant]
     Indication: DRUG USE FOR UNKNOWN INDICATION
     Dosage: 325 Milligram
     Route: 065

REACTIONS (7)
  - Squamous cell carcinoma of lung [Fatal]
  - Sepsis [Recovering/Resolving]
  - Anaemia [Recovering/Resolving]
  - White blood cell count decreased [Recovering/Resolving]
  - Platelet count decreased [Recovering/Resolving]
  - Syncope [Recovering/Resolving]
  - Vascular pseudoaneurysm [Unknown]
